FAERS Safety Report 15223147 (Version 1)
Quarter: 2018Q3

REPORT INFORMATION
  Report Type: Spontaneous
  Country: US (occurrence: US)
  Receive Date: 20180731
  Receipt Date: 20180731
  Transmission Date: 20181010
  Serious: Yes (Other)
  Sender: FDA-Public Use
  Company Number: US-ENDO PHARMACEUTICALS INC-2018-019094

PATIENT
  Age: 28 Year
  Sex: Female
  Weight: 81.63 kg

DRUGS (3)
  1. TESTOPEL [Suspect]
     Active Substance: TESTOSTERONE
     Dosage: 10 PELLETS
     Route: 058
     Dates: start: 201701
  2. TESTOPEL [Suspect]
     Active Substance: TESTOSTERONE
     Indication: BLOOD TESTOSTERONE DECREASED
     Dosage: 10 PELLETS
     Route: 058
     Dates: start: 20171027, end: 20180129
  3. TESTOPEL [Suspect]
     Active Substance: TESTOSTERONE
     Dosage: 10 PELLETS
     Route: 058
     Dates: start: 201610

REACTIONS (7)
  - Prescribed overdose [Recovered/Resolved]
  - Implant site infection [Unknown]
  - Blood blister [Unknown]
  - Acne [Unknown]
  - Off label use [Recovered/Resolved]
  - Expulsion of medication [Recovered/Resolved]
  - Implant site bruising [Unknown]

NARRATIVE: CASE EVENT DATE: 201610
